FAERS Safety Report 4754634-5 (Version None)
Quarter: 2005Q3

REPORT INFORMATION
  Report Type: 
  Country: None (occurrence: None)
  Receive Date: 20050829
  Receipt Date: 20050823
  Transmission Date: 20060218
  Serious: Yes (Other)
  Sender: FDA-Public Use
  Company Number: ZA-GLAXOSMITHKLINE-B0391707A

PATIENT
  Age: 38 Year
  Sex: Female

DRUGS (2)
  1. MALANIL [Suspect]
     Indication: MALARIA PROPHYLAXIS
     Dosage: 1TAB PER DAY
     Route: 048
     Dates: start: 20041125, end: 20041130
  2. NO CONCURRENT MEDICATION [Concomitant]

REACTIONS (3)
  - AGGRESSION [None]
  - ANXIETY [None]
  - PARANOIA [None]
